FAERS Safety Report 8816306 (Version 1)
Quarter: 2012Q4

REPORT INFORMATION
  Report Type: Spontaneous
  Country: US (occurrence: None)
  Receive Date: 20120928
  Receipt Date: 20120928
  Transmission Date: 20130627
  Serious: Yes (Hospitalization)
  Sender: FDA-Public Use
  Company Number: None

PATIENT
  Age: 67 Year
  Sex: Male
  Weight: 134.5 kg

DRUGS (1)
  1. ASPIRIN [Suspect]
     Indication: HEADACHE
     Route: 048
     Dates: start: 20120923, end: 20120923

REACTIONS (7)
  - Dyspnoea [None]
  - Chest discomfort [None]
  - Drug hypersensitivity [None]
  - Bronchial hyperreactivity [None]
  - Condition aggravated [None]
  - Asthma [None]
  - Analgesic asthma syndrome [None]
